FAERS Safety Report 20560708 (Version 12)
Quarter: 2023Q2

REPORT INFORMATION
  Report Type: Report from Study
  Country: IT (occurrence: IT)
  Receive Date: 20220307
  Receipt Date: 20230608
  Transmission Date: 20230721
  Serious: Yes (Hospitalization)
  Sender: FDA-Public Use
  Company Number: IT-AMGEN-ITACT2022037142

PATIENT
  Age: 7 Year
  Sex: Male

DRUGS (33)
  1. CARFILZOMIB [Suspect]
     Active Substance: CARFILZOMIB
     Indication: Acute lymphocytic leukaemia
     Dosage: 50 MILLIGRAM
     Route: 040
     Dates: start: 20211228
  2. VINCRISTINE [Suspect]
     Active Substance: VINCRISTINE
     Indication: Acute lymphocytic leukaemia
     Dosage: 1.35 MILLIGRAM
     Route: 065
     Dates: start: 20220221, end: 20220228
  3. METHOTREXATE [Suspect]
     Active Substance: METHOTREXATE
     Indication: Acute lymphocytic leukaemia
     Dosage: 12 MILLIGRAM
     Route: 037
     Dates: start: 20220207, end: 20220221
  4. COTRIMOXAZOLE [Concomitant]
     Active Substance: SULFAMETHOXAZOLE\TRIMETHOPRIM
     Dosage: 4 MILLIGRAM
     Route: 048
     Dates: start: 20211228, end: 20220315
  5. ACYCLOVIR [Concomitant]
     Active Substance: ACYCLOVIR
     Dosage: 200-250 MILLIGRAM
     Dates: start: 20211230, end: 20220314
  6. AMPHOTERICIN B [Concomitant]
     Active Substance: AMPHOTERICIN B
     Dosage: 75 MILLIGRAM
     Route: 042
     Dates: start: 20211230, end: 20220330
  7. ACETAMINOPHEN [Concomitant]
     Active Substance: ACETAMINOPHEN
     Dosage: 250-350 MILLIGRAM
     Dates: start: 20211230, end: 20220319
  8. CHLORPHENIRAMINE MALEATE [Concomitant]
     Active Substance: CHLORPHENIRAMINE MALEATE
     Dosage: 5-6 MILLIGRAM
     Route: 042
     Dates: start: 20211230, end: 20220309
  9. DEXAMETHASONE [Concomitant]
     Active Substance: DEXAMETHASONE
     Dosage: 3 MILLIGRAM/SQ. METER
     Route: 042
     Dates: start: 20220207
  10. AT III [Concomitant]
     Dosage: 750-1000 UNK
     Route: 042
     Dates: start: 20220109, end: 20220227
  11. OMEPRAZOLE [Concomitant]
     Active Substance: OMEPRAZOLE
     Dosage: 20 MILLIGRAM
     Route: 042
     Dates: start: 20211228, end: 20220314
  12. GABAPENTIN [Concomitant]
     Active Substance: GABAPENTIN
     Dosage: 100 MILLIGRAM
     Route: 048
     Dates: start: 20220119, end: 20220328
  13. ENOXAPARIN [Concomitant]
     Active Substance: ENOXAPARIN
     Dosage: 2000 UNK
     Route: 058
     Dates: start: 20211230, end: 20220301
  14. CARVEDILOL [Concomitant]
     Active Substance: CARVEDILOL
     Dosage: 1.5 MILLIGRAM
     Route: 048
     Dates: start: 20220127
  15. VITAMIN B COMPLEX [Concomitant]
     Active Substance: CYANOCOBALAMIN\DEXPANTHENOL\NIACINAMIDE\PYRIDOXINE HYDROCHLORIDE\RIBOFLAVIN 5^-PHOSPHATE SODIUM\THIA
     Dosage: 1 UNK
     Route: 048
     Dates: start: 20220101, end: 20220307
  16. ONDANSETRON [Concomitant]
     Active Substance: ONDANSETRON
     Dosage: 4 MILLIGRAM
     Route: 042
     Dates: start: 20220207, end: 20220223
  17. HYDROCORTISONE [Concomitant]
     Active Substance: HYDROCORTISONE
     Dosage: 2.5 -5 MILLIGRAM
     Route: 048
     Dates: start: 20220119, end: 20220323
  18. CHOLECALCIFEROL [Concomitant]
     Active Substance: CHOLECALCIFEROL
     Dosage: 2000 UNK
     Route: 048
     Dates: start: 20220120
  19. CALCIUM CARBONATE [Concomitant]
     Active Substance: CALCIUM CARBONATE
     Dosage: 500 MILLIGRAM
     Route: 048
     Dates: start: 20220127, end: 20220527
  20. PIPERACILLIN SODIUM\TAZOBACTAM SODIUM [Concomitant]
     Active Substance: PIPERACILLIN SODIUM\TAZOBACTAM SODIUM
     Dosage: 2.5 GRAM
     Route: 042
     Dates: start: 20220214, end: 20220302
  21. ALBUMIN HUMAN [Concomitant]
     Active Substance: ALBUMIN HUMAN
     Dosage: 20 GRAM
     Route: 042
     Dates: start: 20211229, end: 20220128
  22. PEG/L-ASPARAGINASE [Concomitant]
     Active Substance: PEGASPARGASE
     Dosage: 900 UNK
     Dates: start: 20220221
  23. CYTARABINE [Concomitant]
     Active Substance: CYTARABINE
     Dosage: 68 MILLIGRAM
     Route: 042
     Dates: start: 20220207
  24. CYCLOPHOSPHAMIDE [Concomitant]
     Active Substance: CYCLOPHOSPHAMIDE
     Dosage: 900 MILLIGRAM
     Dates: start: 20220207
  25. MERCAPTOPURINE [Concomitant]
     Active Substance: MERCAPTOPURINE
     Dosage: 50-75 MILLIGRAM
     Dates: start: 20220207
  26. AMOXICILLIN\CLAVULANIC ACID [Concomitant]
     Active Substance: AMOXICILLIN\CLAVULANIC ACID
     Dosage: 7 MILLILITER (400/57 MG/5ML)
     Route: 048
     Dates: start: 20220128, end: 20220205
  27. Immunoglobulin [Concomitant]
     Dosage: 10 GRAM
     Route: 042
     Dates: start: 20220126, end: 20220226
  28. CALCIUM GLUCONATE [Concomitant]
     Active Substance: CALCIUM GLUCONATE
     Dosage: 20 MILLILITER
     Route: 042
     Dates: start: 20220117, end: 20220307
  29. LACTULOSE [Concomitant]
     Active Substance: LACTULOSE
     Dosage: 5-10 MILLILITER
     Route: 048
     Dates: start: 20220123, end: 20220307
  30. TOBRAMYCIN SULFATE [Concomitant]
     Active Substance: TOBRAMYCIN SULFATE
     Dosage: 4 GTT DROPS
     Route: 050
     Dates: start: 20220125, end: 20220126
  31. MESNA [Concomitant]
     Active Substance: MESNA
     Dosage: 300 MILLIGRAM
     Route: 042
     Dates: start: 20220207
  32. FUROSEMIDE [Concomitant]
     Active Substance: FUROSEMIDE
     Dosage: 15 MILLIGRAM
     Route: 042
     Dates: start: 20220106, end: 20220223
  33. POTASSIUM CHLORIDE [Concomitant]
     Active Substance: POTASSIUM CHLORIDE
     Dosage: 40 MILLIEQUIVALENT
     Route: 042
     Dates: start: 20220207, end: 20220224

REACTIONS (1)
  - Petit mal epilepsy [Recovered/Resolved]

NARRATIVE: CASE EVENT DATE: 20220225
